FAERS Safety Report 10013800 (Version 1)
Quarter: 2014Q1

REPORT INFORMATION
  Report Type: Spontaneous
  Country: US (occurrence: US)
  Receive Date: 20140316
  Receipt Date: 20140316
  Transmission Date: 20141002
  Serious: No
  Sender: FDA-Public Use
  Company Number: US-009507513-1403USA006913

PATIENT
  Sex: 0
  Weight: 63.49 kg

DRUGS (1)
  1. NEXPLANON [Suspect]
     Dosage: 1 STANDARD PACKAGE OF PF APPLI OF 1
     Route: 059
     Dates: start: 201309

REACTIONS (2)
  - Device kink [Unknown]
  - No adverse event [Unknown]
